FAERS Safety Report 15410401 (Version 7)
Quarter: 2019Q2

REPORT INFORMATION
  Report Type: Spontaneous
  Country: US (occurrence: US)
  Receive Date: 20180921
  Receipt Date: 20190505
  Transmission Date: 20190711
  Serious: No
  Sender: FDA-Public Use
  Company Number: US-JNJFOC-20180841056

PATIENT
  Age: 73 Year
  Sex: Female
  Weight: 55 kg

DRUGS (19)
  1. MULTIVITAMINS [Concomitant]
     Active Substance: VITAMINS
     Indication: SUPPLEMENTATION THERAPY
  2. CYANOCOBALAMIN. [Concomitant]
     Active Substance: CYANOCOBALAMIN
  3. SILYBUM MARIANUM [Concomitant]
     Active Substance: DIETARY SUPPLEMENT\HERBALS\MILK THISTLE
  4. PROVENTIL [Concomitant]
     Active Substance: ALBUTEROL
  5. VALACYCLOVIR [Concomitant]
     Active Substance: VALACYCLOVIR HYDROCHLORIDE
  6. CALCIUM [Concomitant]
     Active Substance: CALCIUM
  7. TURMERIC [Concomitant]
     Active Substance: HERBALS\TURMERIC
  8. SELENIUM [Concomitant]
     Active Substance: SELENIUM
  9. BACTRIM DS [Concomitant]
     Active Substance: SULFAMETHOXAZOLE\TRIMETHOPRIM
  10. IMBRUVICA [Suspect]
     Active Substance: IBRUTINIB
     Indication: CHRONIC LYMPHOCYTIC LEUKAEMIA
     Dosage: 420 MG, QD
     Route: 048
     Dates: start: 20180823
  11. RAMIPRIL. [Concomitant]
     Active Substance: RAMIPRIL
     Indication: HYPERTENSION
  12. HYDROCHLOROTHIAZIDE. [Concomitant]
     Active Substance: HYDROCHLOROTHIAZIDE
     Indication: HYPERTENSION
     Dosage: 2.5 MG, UNK
  13. MAGNESIUM GLUCONATE [Concomitant]
     Active Substance: MAGNESIUM GLUCONATE
  14. VITAMIN D NOS [Concomitant]
     Active Substance: VITAMIN D NOS
  15. IMBRUVICA [Suspect]
     Active Substance: IBRUTINIB
     Indication: CHRONIC LYMPHOCYTIC LEUKAEMIA
     Dosage: 140 MG, QD
     Route: 048
     Dates: start: 20190320
  16. BENADRYL ALLERGY [Concomitant]
     Active Substance: DIPHENHYDRAMINE HYDROCHLORIDE
     Indication: SLEEP DISORDER
     Dosage: 2.5 MG, UNK
  17. LORAZEPAM. [Concomitant]
     Active Substance: LORAZEPAM
  18. ALLOPURINOL. [Concomitant]
     Active Substance: ALLOPURINOL
  19. ATIVAN [Concomitant]
     Active Substance: LORAZEPAM

REACTIONS (13)
  - Off label use [Unknown]
  - Gingival bleeding [Unknown]
  - Petechiae [Not Recovered/Not Resolved]
  - Fatigue [Not Recovered/Not Resolved]
  - Angina bullosa haemorrhagica [Not Recovered/Not Resolved]
  - Stomatitis [Recovered/Resolved]
  - Increased appetite [Recovering/Resolving]
  - Headache [Not Recovered/Not Resolved]
  - White blood cell count increased [Recovering/Resolving]
  - Contusion [Not Recovered/Not Resolved]
  - Oral herpes [Recovered/Resolved]
  - Incorrect dose administered [Unknown]
  - Aphthous ulcer [Recovering/Resolving]

NARRATIVE: CASE EVENT DATE: 20180824
